FAERS Safety Report 18389701 (Version 10)
Quarter: 2021Q2

REPORT INFORMATION
  Report Type: Spontaneous
  Country: US (occurrence: US)
  Receive Date: 20201016
  Receipt Date: 20210415
  Transmission Date: 20210717
  Serious: No
  Sender: FDA-Public Use
  Company Number: US-AMGEN-USASP2020165583

PATIENT
  Age: 58 Year
  Sex: Female
  Weight: 89.34 kg

DRUGS (4)
  1. NPLATE [Suspect]
     Active Substance: ROMIPLOSTIM
     Indication: THROMBOCYTOPENIA
     Dosage: 1 MICROGRAM/KILOGRAM, QWK
     Route: 058
     Dates: start: 20190927
  2. BACLOFEN. [Concomitant]
     Active Substance: BACLOFEN
  3. CODEINE [Concomitant]
     Active Substance: CODEINE
  4. TRAMADOL. [Concomitant]
     Active Substance: TRAMADOL

REACTIONS (2)
  - Antibody test positive [Recovered/Resolved]
  - Therapeutic product effect decreased [Not Recovered/Not Resolved]

NARRATIVE: CASE EVENT DATE: 20201023
